FAERS Safety Report 10615623 (Version 1)
Quarter: 2014Q4

REPORT INFORMATION
  Report Type: Spontaneous
  Country: US (occurrence: US)
  Receive Date: 20141201
  Receipt Date: 20141201
  Transmission Date: 20150529
  Serious: Yes (Death)
  Sender: FDA-Public Use
  Company Number: US-CIPLA LTD.-2014US02225

PATIENT

DRUGS (4)
  1. CT-322 [Suspect]
     Active Substance: PEGDINETANIB
     Indication: GLIOBLASTOMA
     Dosage: 1 MG/KG INTRAVENOUS WEEKLY
     Route: 042
  2. CT-322 [Suspect]
     Active Substance: PEGDINETANIB
     Dosage: 2 MG/KG INTRAVENOUS WEEKLY
     Route: 042
  3. IRINOTECAN [Suspect]
     Active Substance: IRINOTECAN
     Indication: GLIOBLASTOMA
     Dosage: 125 MG/M2 INTRAVENOUSLY EVERY 2 WEEKS
     Route: 042
  4. IRINOTECAN [Suspect]
     Active Substance: IRINOTECAN
     Dosage: 340 MG/M2 EVERY 2 WEEKS FOR PATIENTS RECEIVING ENZYME RECEIVING ANTI EPILEPTIC DRUGS

REACTIONS (1)
  - Haemorrhage intracranial [Fatal]
